FAERS Safety Report 23837981 (Version 3)
Quarter: 2024Q2

REPORT INFORMATION
  Report Type: Report from Study
  Country: CA (occurrence: CA)
  Receive Date: 20240509
  Receipt Date: 20240619
  Transmission Date: 20240715
  Serious: Yes (Hospitalization, Other)
  Sender: FDA-Public Use
  Company Number: CA-JNJFOC-20240368997

PATIENT
  Age: 65 Year
  Sex: Female

DRUGS (3)
  1. REMICADE [Suspect]
     Active Substance: INFLIXIMAB
     Indication: Crohn^s disease
     Route: 041
     Dates: start: 20170324
  2. REMICADE [Suspect]
     Active Substance: INFLIXIMAB
     Route: 041
  3. LIPITOR [Concomitant]
     Active Substance: ATORVASTATIN CALCIUM

REACTIONS (7)
  - Clostridium difficile infection [Recovering/Resolving]
  - Haematemesis [Recovering/Resolving]
  - Weight decreased [Recovering/Resolving]
  - Cholelithiasis [Recovering/Resolving]
  - Ulcer haemorrhage [Recovering/Resolving]
  - Abdominal pain [Unknown]
  - Frequent bowel movements [Unknown]

NARRATIVE: CASE EVENT DATE: 20240321
